FAERS Safety Report 23370022 (Version 1)
Quarter: 2024Q1

REPORT INFORMATION
  Report Type: Spontaneous
  Country: US (occurrence: None)
  Receive Date: 20240104
  Receipt Date: 20240104
  Transmission Date: 20240410
  Serious: No
  Sender: FDA-Public Use
  Company Number: None

PATIENT
  Age: 60 Year
  Sex: Female
  Weight: 36.29 kg

DRUGS (1)
  1. ORENCIA [Suspect]
     Active Substance: ABATACEPT
     Indication: Rheumatoid arthritis
     Dosage: INJECT 87.5MG MG SUBCUTANEOUSLY ONCE A WEEK AS DIRECTED.
     Route: 058
     Dates: start: 202307

REACTIONS (2)
  - Bronchitis [None]
  - Therapy interrupted [None]
